FAERS Safety Report 5391101-2 (Version None)
Quarter: 2007Q3

REPORT INFORMATION
  Report Type: 
  Country: None (occurrence: None)
  Receive Date: 20070719
  Receipt Date: 20070713
  Transmission Date: 20080115
  Serious: Yes (Life-Threatening, Hospitalization, Other)
  Sender: FDA-Public Use
  Company Number: PHEH2007US09938

PATIENT
  Age: 86 Year
  Sex: Female

DRUGS (1)
  1. ZELNORM [Suspect]
     Dates: start: 20031030, end: 20060923

REACTIONS (7)
  - BLOOD PRESSURE DECREASED [None]
  - COLOSTOMY [None]
  - HIP FRACTURE [None]
  - MYOCARDIAL INFARCTION [None]
  - PNEUMONIA [None]
  - SURGERY [None]
  - THROMBOSIS [None]
